FAERS Safety Report 6209811-3 (Version None)
Quarter: 2009Q2

REPORT INFORMATION
  Report Type: 
  Country: None (occurrence: None)
  Receive Date: 20090601
  Receipt Date: 20090518
  Transmission Date: 20091009
  Serious: Yes (Hospitalization)
  Sender: FDA-Public Use
  Company Number: US-ROCHE-514242

PATIENT
  Sex: Male
  Weight: 65 kg

DRUGS (6)
  1. PEG-INTERFERON ALFA 2A (RO 25-8310) [Suspect]
     Indication: HEPATITIS C
     Route: 058
     Dates: start: 20070430, end: 20070813
  2. RIBAVIRIN [Suspect]
     Indication: HEPATITIS C
     Route: 048
     Dates: start: 20070430, end: 20070820
  3. VX-950 [Suspect]
     Indication: HEPATITIS C
     Route: 048
     Dates: start: 20070430, end: 20070819
  4. ZOLOFT [Concomitant]
     Indication: DEPRESSION
     Route: 048
     Dates: start: 20070713
  5. QUETAPINE FUMARATE [Concomitant]
     Indication: ANXIETY
     Dosage: TRADE NAME REPORTED AS SEROQUIL. FREQUENCY: EVERY HOUR OF SLEEP (QHS).
     Route: 048
     Dates: start: 20070601
  6. ADVIL [Concomitant]
     Indication: ARTHRALGIA
     Dates: start: 20070430, end: 20070830

REACTIONS (2)
  - CHOLELITHIASIS [None]
  - PANCREATITIS [None]
